FAERS Safety Report 22195671 (Version 1)
Quarter: 2023Q2

REPORT INFORMATION
  Report Type: Other
  Country: US (occurrence: US)
  Receive Date: 20230411
  Receipt Date: 20230411
  Transmission Date: 20230722
  Serious: Yes (Death)
  Sender: FDA-Public Use
  Company Number: US-ALVOGEN-2023090040

PATIENT
  Age: 45 Year
  Sex: Female

DRUGS (5)
  1. GABAPENTIN [Suspect]
     Active Substance: GABAPENTIN
     Indication: Suicide attempt
     Route: 048
  2. BUTALBITAL [Suspect]
     Active Substance: BUTALBITAL
     Indication: Suicide attempt
     Route: 048
  3. VALPROIC ACID [Suspect]
     Active Substance: VALPROIC ACID
     Indication: Suicide attempt
     Route: 048
  4. ALCOHOL [Suspect]
     Active Substance: ALCOHOL
     Indication: Suicide attempt
     Route: 048
  5. HERBALS\MITRAGYNINE [Suspect]
     Active Substance: HERBALS\MITRAGYNINE
     Indication: Suicide attempt
     Route: 048

REACTIONS (3)
  - Completed suicide [Fatal]
  - Respiratory arrest [Fatal]
  - Cardiac arrest [Fatal]
